FAERS Safety Report 9216367 (Version 1)
Quarter: 2013Q2

REPORT INFORMATION
  Report Type: Spontaneous
  Country: DE (occurrence: None)
  Receive Date: 20130403
  Receipt Date: 20130403
  Transmission Date: 20140414
  Serious: Yes (Other)
  Sender: FDA-Public Use
  Company Number: GER/GER/13/0028802

PATIENT
  Age: 36 Year
  Sex: Female
  Weight: 90 kg

DRUGS (3)
  1. FLUOXETINE (FLUOXETINE HYDROCHLORIDE) [Suspect]
     Indication: DEPRESSION
     Route: 048
     Dates: start: 20110830, end: 20120522
  2. LAMICTAL [Suspect]
     Indication: DEPRESSION
     Route: 048
     Dates: start: 20110830, end: 20120522
  3. CYMBALTA (DULOXETINE HYDROCHLORIDE) [Suspect]
     Indication: DEPRESSION
     Route: 048
     Dates: start: 20110830, end: 20120522

REACTIONS (2)
  - Pregnancy [None]
  - Maternal exposure during pregnancy [None]
